FAERS Safety Report 17325706 (Version 1)
Quarter: 2020Q1

REPORT INFORMATION
  Report Type: Spontaneous
  Country: PL (occurrence: PL)
  Receive Date: 20200127
  Receipt Date: 20200127
  Transmission Date: 20200409
  Serious: Yes (Other)
  Sender: FDA-Public Use
  Company Number: NVSC2020PL017201

PATIENT
  Age: 32 Year
  Sex: Male

DRUGS (4)
  1. TOBRADEX [Concomitant]
     Active Substance: DEXAMETHASONE\TOBRAMYCIN
     Indication: ANTIBIOTIC THERAPY
     Route: 065
  2. BETADRIN [Concomitant]
     Indication: ANTIBIOTIC THERAPY
     Dosage: UNK, TID
     Route: 065
  3. DALACIN C [Concomitant]
     Active Substance: CLINDAMYCIN PHOSPHATE
     Indication: ANTIBIOTIC THERAPY
     Dosage: 300 MG, TID
     Route: 065
  4. METHOTREXATE. [Suspect]
     Active Substance: METHOTREXATE
     Indication: IMMUNOSUPPRESSANT DRUG THERAPY
     Dosage: 30 MG, QW
     Route: 058

REACTIONS (6)
  - Eyelid oedema [Recovering/Resolving]
  - Conjunctival oedema [Recovering/Resolving]
  - Optic neuropathy [Recovering/Resolving]
  - Exophthalmos [Recovering/Resolving]
  - Conjunctival hyperaemia [Recovering/Resolving]
  - Intraocular pressure increased [Recovering/Resolving]
